FAERS Safety Report 20980953 (Version 1)
Quarter: 2022Q2

REPORT INFORMATION
  Report Type: Spontaneous
  Country: US (occurrence: US)
  Receive Date: 20220620
  Receipt Date: 20220620
  Transmission Date: 20220720
  Serious: No
  Sender: FDA-Public Use
  Company Number: US-BAYER-2022A085738

PATIENT
  Age: 51 Year
  Sex: Female

DRUGS (1)
  1. CLARITIN-D 12 HOUR [Suspect]
     Active Substance: LORATADINE\PSEUDOEPHEDRINE SULFATE
     Indication: Hypersensitivity
     Dosage: 1 DF, BID
     Route: 048
     Dates: start: 202205, end: 202205

REACTIONS (1)
  - Therapeutic response shortened [Recovered/Resolved]
